FAERS Safety Report 12984511 (Version 3)
Quarter: 2017Q1

REPORT INFORMATION
  Report Type: Spontaneous
  Country: PT (occurrence: PT)
  Receive Date: 20161129
  Receipt Date: 20170202
  Transmission Date: 20170428
  Serious: Yes (Other)
  Sender: FDA-Public Use
  Company Number: PT-GILEAD-2016-0245135

PATIENT
  Sex: Male

DRUGS (2)
  1. ENTECAVIR. [Suspect]
     Active Substance: ENTECAVIR
     Indication: HEPATITIS B
     Dosage: UNK
     Route: 065
  2. VIREAD [Suspect]
     Active Substance: TENOFOVIR DISOPROXIL FUMARATE
     Indication: HEPATITIS B
     Route: 065

REACTIONS (1)
  - Hepatocellular carcinoma [Unknown]

NARRATIVE: CASE EVENT DATE: 2016
